FAERS Safety Report 12563204 (Version 1)
Quarter: 2016Q3

REPORT INFORMATION
  Report Type: Spontaneous
  Country: US (occurrence: US)
  Receive Date: 20160715
  Receipt Date: 20160715
  Transmission Date: 20161109
  Serious: Yes (Other)
  Sender: FDA-Public Use
  Company Number: US-PFIZER INC-2016338649

PATIENT
  Sex: Male

DRUGS (2)
  1. OXYCODONE AND ACETAMINOPHEN [Suspect]
     Active Substance: ACETAMINOPHEN\OXYCODONE HYDROCHLORIDE
     Indication: PAIN
     Dosage: [OXYCODONE HYDROCHLORIDE, 10MG]/[PARACETAMOL, 325 MG]
  2. GABAPENTIN. [Suspect]
     Active Substance: GABAPENTIN
     Indication: NEURALGIA
     Dosage: 100 MG, 3X/DAY

REACTIONS (10)
  - Insomnia [Unknown]
  - Restlessness [Unknown]
  - Myalgia [Unknown]
  - Product use issue [Unknown]
  - Nerve injury [Unknown]
  - Back pain [Unknown]
  - Muscle twitching [Unknown]
  - Tremor [Unknown]
  - Feeling abnormal [Unknown]
  - Malaise [Unknown]
